FAERS Safety Report 7214354-4 (Version None)
Quarter: 2011Q1

REPORT INFORMATION
  Report Type: 
  Country: None (occurrence: None)
  Receive Date: 20110107
  Receipt Date: 20110103
  Transmission Date: 20110831
  Serious: Yes (Hospitalization)
  Sender: FDA-Public Use
  Company Number: GB-ABBOTT-10P-167-0683524-00

PATIENT
  Age: 58 Year
  Sex: Male
  Weight: 86.078 kg

DRUGS (5)
  1. PROSTAP [Suspect]
     Indication: BREAST CANCER
     Route: 058
     Dates: start: 20090225
  2. FLUOXETINE [Concomitant]
     Indication: PRODUCT USED FOR UNKNOWN INDICATION
     Dates: start: 20100301
  3. CELECOXIB OR PLACEBO [Concomitant]
     Indication: BREAST CANCER
     Route: 048
     Dates: start: 20090331
  4. ADCAL-D3 [Concomitant]
     Indication: PRODUCT USED FOR UNKNOWN INDICATION
     Dates: start: 20090331
  5. ZOLEDRONIC ACID [Concomitant]
     Indication: PRODUCT USED FOR UNKNOWN INDICATION
     Dates: start: 20090331

REACTIONS (3)
  - CORONARY ARTERY OCCLUSION [None]
  - CHEST PAIN [None]
  - AORTIC STENOSIS [None]
